FAERS Safety Report 8093906-6 (Version None)
Quarter: 2012Q1

REPORT INFORMATION
  Report Type: 
  Country: None (occurrence: None)
  Receive Date: 20120131
  Receipt Date: 20120124
  Transmission Date: 20120608
  Serious: Yes (Hospitalization, Other)
  Sender: FDA-Public Use
  Company Number: PHHY2011CA88901

PATIENT
  Sex: Female

DRUGS (8)
  1. SYNTHROID [Concomitant]
  2. EXJADE [Suspect]
     Indication: MYELODYSPLASTIC SYNDROME
     Dosage: UNK UKN, UNK
     Route: 048
  3. EXJADE [Suspect]
     Dosage: 1250 MG
     Route: 048
  4. DESFERAL [Concomitant]
  5. EXJADE [Suspect]
     Dosage: 500 MG, DAILY
     Route: 048
  6. ASACOL [Concomitant]
  7. EXJADE [Suspect]
     Dosage: 750 MG, DAILY
     Route: 048
     Dates: end: 20111114
  8. EXJADE [Suspect]
     Dosage: 1250 MG, DAILY
     Route: 048

REACTIONS (5)
  - LARGE INTESTINAL ULCER [None]
  - HAEMORRHAGE [None]
  - DIARRHOEA [None]
  - RECTAL HAEMORRHAGE [None]
  - CROHN'S DISEASE [None]
